FAERS Safety Report 8511828-0 (Version None)
Quarter: 2012Q3

REPORT INFORMATION
  Report Type: 
  Country: None (occurrence: None)
  Receive Date: 20120716
  Receipt Date: 20120710
  Transmission Date: 20120928
  Serious: Yes (Other)
  Sender: FDA-Public Use
  Company Number: BR-PFIZER INC-2012165198

PATIENT
  Age: 63 Year
  Sex: Female

DRUGS (2)
  1. TRAMADOL HYDROCHLORIDE [Concomitant]
     Indication: PAIN
  2. LYRICA [Suspect]
     Dosage: UNK
     Route: 048

REACTIONS (1)
  - SPINAL DISORDER [None]
